FAERS Safety Report 12520734 (Version 1)
Quarter: 2016Q2

REPORT INFORMATION
  Report Type: Spontaneous
  Country: US (occurrence: None)
  Receive Date: 20160630
  Receipt Date: 20160630
  Transmission Date: 20160815
  Serious: Yes (Hospitalization)
  Sender: FDA-Public Use
  Company Number: None

PATIENT
  Age: 59 Year
  Sex: Female

DRUGS (6)
  1. IBRANCE [Suspect]
     Active Substance: PALBOCICLIB
     Indication: BREAST CANCER
     Dosage: 1 CAPSULE DAILY PO
     Route: 048
     Dates: start: 20160210
  2. SCOPOLAMINE [Concomitant]
     Active Substance: SCOPOLAMINE
  3. FALSODEX [Concomitant]
  4. XGEVA [Concomitant]
     Active Substance: DENOSUMAB
  5. PROMETHAZINE [Concomitant]
     Active Substance: PROMETHAZINE\PROMETHAZINE HYDROCHLORIDE
  6. FENTANYL. [Concomitant]
     Active Substance: FENTANYL

REACTIONS (6)
  - Dehydration [None]
  - Therapy cessation [None]
  - Cystitis [None]
  - Neutropenia [None]
  - Hypocalcaemia [None]
  - Blood count abnormal [None]

NARRATIVE: CASE EVENT DATE: 20160622
